FAERS Safety Report 5768536-9 (Version None)
Quarter: 2008Q2

REPORT INFORMATION
  Report Type: 
  Country: None (occurrence: None)
  Receive Date: 20080612
  Receipt Date: 20080305
  Transmission Date: 20081010
  Serious: No
  Sender: FDA-Public Use
  Company Number: US-ABBOTT-08P-163-0441467-00

PATIENT
  Sex: Female
  Weight: 89.892 kg

DRUGS (5)
  1. HUMIRA [Suspect]
     Indication: RHEUMATOID ARTHRITIS
     Route: 058
     Dates: start: 20080101
  2. METHOTREXATE [Concomitant]
     Indication: RHEUMATOID ARTHRITIS
  3. THYROID TAB [Concomitant]
     Indication: DRUG USE FOR UNKNOWN INDICATION
  4. THYROID TAB [Concomitant]
  5. FOLIC ACID [Concomitant]
     Indication: DRUG USE FOR UNKNOWN INDICATION

REACTIONS (4)
  - INFECTION [None]
  - MYRINGITIS [None]
  - NASOPHARYNGITIS [None]
  - TYMPANIC MEMBRANE PERFORATION [None]
